FAERS Safety Report 6451717-9 (Version None)
Quarter: 2009Q4

REPORT INFORMATION
  Report Type: 
  Country: None (occurrence: None)
  Receive Date: 20091120
  Receipt Date: 20091120
  Transmission Date: 20100525
  Serious: No
  Sender: FDA-Public Use
  Company Number: None

PATIENT
  Age: 81 Year
  Sex: Male
  Weight: 92.99 kg

DRUGS (1)
  1. FINASTERIDE [Suspect]
     Indication: PROSTATE CANCER
     Dosage: 5 MG EVERY DAY PO
     Route: 048
     Dates: start: 20080906, end: 20081216

REACTIONS (1)
  - GYNAECOMASTIA [None]
